FAERS Safety Report 5019269-8 (Version None)
Quarter: 2006Q2

REPORT INFORMATION
  Report Type: 
  Country: None (occurrence: None)
  Receive Date: 20060531
  Receipt Date: 20060524
  Transmission Date: 20061013
  Serious: Yes (Disabling, Other)
  Sender: FDA-Public Use
  Company Number: CH-2005-017935

PATIENT
  Age: 25 Year
  Sex: Female
  Weight: 61.5 kg

DRUGS (1)
  1. YASMIN [Suspect]
     Indication: ORAL CONTRACEPTION
     Dosage: 1 TAB(S), 1X/DAY, ORAL
     Route: 048
     Dates: end: 20050829

REACTIONS (9)
  - C-REACTIVE PROTEIN INCREASED [None]
  - COAGULATION FACTOR VIII LEVEL INCREASED [None]
  - FIBRIN D DIMER INCREASED [None]
  - MUSCULOSKELETAL CHEST PAIN [None]
  - PAIN [None]
  - PNEUMONIA [None]
  - PULMONARY EMBOLISM [None]
  - PULMONARY INFARCTION [None]
  - RED BLOOD CELL SEDIMENTATION RATE INCREASED [None]
